FAERS Safety Report 4784201-9 (Version None)
Quarter: 2005Q3

REPORT INFORMATION
  Report Type: 
  Country: None (occurrence: None)
  Receive Date: 20050930
  Receipt Date: 20050701
  Transmission Date: 20060218
  Serious: Yes (Hospitalization)
  Sender: FDA-Public Use
  Company Number: JP-BRISTOL-MYERS SQUIBB COMPANY-13029863

PATIENT
  Age: 65 Year
  Sex: Female
  Weight: 50 kg

DRUGS (1)
  1. MEVALOTIN [Suspect]
     Indication: HYPERLIPIDAEMIA
     Dosage: INITIATED 2002-2003
     Route: 048
     Dates: end: 20050608

REACTIONS (1)
  - IDIOPATHIC THROMBOCYTOPENIC PURPURA [None]
